FAERS Safety Report 8574110-1 (Version None)
Quarter: 2012Q3

REPORT INFORMATION
  Report Type: 
  Country: None (occurrence: None)
  Receive Date: 20120806
  Receipt Date: 20120803
  Transmission Date: 20120928
  Serious: Yes (Other)
  Sender: FDA-Public Use
  Company Number: PHEH2012US015213

PATIENT

DRUGS (1)
  1. RECLAST [Suspect]
     Dosage: UNK
     Route: 042

REACTIONS (3)
  - NEUROPATHY PERIPHERAL [None]
  - CALCINOSIS [None]
  - SHOULDER DEFORMITY [None]
